FAERS Safety Report 7884368-X (Version None)
Quarter: 2011Q4

REPORT INFORMATION
  Report Type: 
  Country: None (occurrence: None)
  Receive Date: 20111102
  Receipt Date: 20111018
  Transmission Date: 20120403
  Serious: Yes (Other)
  Sender: FDA-Public Use
  Company Number: BE-ROCHE-1005429

PATIENT
  Sex: Female

DRUGS (1)
  1. TARADYL [Suspect]
     Indication: PRODUCT USED FOR UNKNOWN INDICATION
     Route: 065

REACTIONS (7)
  - PAIN [None]
  - NAUSEA [None]
  - ACNE [None]
  - PRURITUS [None]
  - PYREXIA [None]
  - INFLAMMATION [None]
  - ARTHRALGIA [None]
